FAERS Safety Report 13596515 (Version 2)
Quarter: 2018Q1

REPORT INFORMATION
  Report Type: Spontaneous
  Country: CA (occurrence: CA)
  Receive Date: 20170531
  Receipt Date: 20180206
  Transmission Date: 20180508
  Serious: Yes (Other)
  Sender: FDA-Public Use
  Company Number: PHHY2017CA077154

PATIENT
  Sex: Male

DRUGS (4)
  1. SANDOSTATIN [Suspect]
     Active Substance: OCTREOTIDE ACETATE
     Indication: ACROMEGALY
     Route: 065
  2. SANDOSTATIN [Suspect]
     Active Substance: OCTREOTIDE ACETATE
     Indication: BLOOD GROWTH HORMONE ABNORMAL
  3. DOSTINEX [Suspect]
     Active Substance: CABERGOLINE
     Indication: BLOOD GROWTH HORMONE ABNORMAL
  4. DOSTINEX [Suspect]
     Active Substance: CABERGOLINE
     Indication: ACROMEGALY
     Dosage: UNK
     Route: 065

REACTIONS (4)
  - Thrombosis [Unknown]
  - Neoplasm progression [Unknown]
  - Drug ineffective [Unknown]
  - Drug ineffective for unapproved indication [Unknown]
